FAERS Safety Report 11678421 (Version 5)
Quarter: 2024Q4

REPORT INFORMATION
  Report Type: Spontaneous
  Country: IR (occurrence: IR)
  Receive Date: 20151028
  Receipt Date: 20241008
  Transmission Date: 20250114
  Serious: Yes (Other)
  Sender: PFIZER
  Company Number: IR-MLMSERVICE-20151015-0049391-1

PATIENT
  Age: 52 Year
  Sex: Male

DRUGS (6)
  1. IRINOTECAN HYDROCHLORIDE [Suspect]
     Active Substance: IRINOTECAN HYDROCHLORIDE
     Indication: Adenocarcinoma of colon
     Dosage: UNK
  2. OXALIPLATIN [Suspect]
     Active Substance: OXALIPLATIN
     Indication: Adenocarcinoma of colon
     Dosage: 130 MG/M2, TWICE A DAY (DAY 1) TO 3 CYCLES
     Route: 042
  3. CAPECITABINE [Concomitant]
     Active Substance: CAPECITABINE
     Indication: Adenocarcinoma of colon
     Dosage: 1000 MG/M2 TWICE DAILY, CYCLIC
     Route: 048
  4. CAPECITABINE [Concomitant]
     Active Substance: CAPECITABINE
     Dosage: 1000 MG/M2, TWICE A DAY ON DAYS 1-14 THAT WAS GIVEN EVERY 3 WEEKS FOR NEARLY 8 MONTHS
     Route: 048
  5. XELODA [Concomitant]
     Active Substance: CAPECITABINE
     Indication: Adenocarcinoma of colon
     Dosage: UNK
  6. BEVACIZUMAB [Concomitant]
     Active Substance: BEVACIZUMAB
     Indication: Adenocarcinoma of colon
     Dosage: 7.5 MG/KG ON DAY 1 EVERY 3 WEEKS FOR NEARLY 8 MONTHS
     Route: 042

REACTIONS (2)
  - Second primary malignancy [Recovering/Resolving]
  - Chronic myeloid leukaemia [Recovering/Resolving]
